FAERS Safety Report 5675233-7 (Version None)
Quarter: 2008Q2

REPORT INFORMATION
  Report Type: 
  Country: None (occurrence: None)
  Receive Date: 20080307
  Receipt Date: 20070503
  Transmission Date: 20081010
  Serious: Yes (Other)
  Sender: FDA-Public Use
  Company Number: T200700484

PATIENT
  Age: 30 Year
  Sex: Female
  Weight: 72.6 kg

DRUGS (7)
  1. OPTIRAY 300 [Suspect]
     Indication: COMPUTERISED TOMOGRAM
     Dosage: 100 ML, SINGLE, INTRAVENOUS
     Route: 042
     Dates: start: 20070425, end: 20070425
  2. OPTIRAY 300 [Suspect]
     Indication: COMPUTERISED TOMOGRAM ABDOMEN
     Dosage: 100 ML, SINGLE, INTRAVENOUS
     Route: 042
     Dates: start: 20070425, end: 20070425
  3. SINGULAIR /01362601/ (MONTELUKAST) [Concomitant]
  4. ZYRTEC [Concomitant]
  5. DEPAKOTE [Concomitant]
  6. WELLBUTRIN /00700501/ (IBUPROPION) [Concomitant]
  7. ALBUTEROL /00139501/ (SALBUTAMOL) [Concomitant]

REACTIONS (4)
  - EYE SWELLING [None]
  - LACRIMATION INCREASED [None]
  - NASAL CONGESTION [None]
  - THROAT TIGHTNESS [None]
